FAERS Safety Report 10374506 (Version 2)
Quarter: 2014Q3

REPORT INFORMATION
  Report Type: Spontaneous
  Country: US (occurrence: US)
  Receive Date: 20140811
  Receipt Date: 20140811
  Transmission Date: 20150326
  Serious: Yes (Other)
  Sender: FDA-Public Use
  Company Number: US-UNITED THERAPEUTICS-UNT-2014-000316

PATIENT
  Age: 68 Year
  Sex: Female
  Weight: 64.85 kg

DRUGS (2)
  1. ADCIRCA [Concomitant]
     Active Substance: TADALAFIL
     Indication: PRODUCT USED FOR UNKNOWN INDICATION
  2. REMODULIN [Suspect]
     Active Substance: TREPROSTINIL
     Indication: COR PULMONALE CHRONIC
     Dosage: 0.05 ?G/KG/MIN, CONTINUING
     Route: 058
     Dates: start: 20131230

REACTIONS (15)
  - Infusion site erythema [Unknown]
  - Infusion site swelling [Unknown]
  - Cough [Unknown]
  - Nausea [Unknown]
  - Headache [Unknown]
  - Epistaxis [Unknown]
  - Pyrexia [Unknown]
  - Infusion site pain [Unknown]
  - Adverse drug reaction [Unknown]
  - Malaise [Unknown]
  - Throat irritation [Unknown]
  - Seasonal allergy [Unknown]
  - Interstitial lung disease [Recovered/Resolved]
  - Sneezing [Unknown]
  - Nasal congestion [Unknown]

NARRATIVE: CASE EVENT DATE: 20140613
